FAERS Safety Report 4910879-2 (Version None)
Quarter: 2006Q1

REPORT INFORMATION
  Report Type: 
  Country: None (occurrence: None)
  Receive Date: 20060214
  Receipt Date: 20011116
  Transmission Date: 20060701
  Serious: Yes (Death, Hospitalization, Other)
  Sender: FDA-Public Use
  Company Number: US-NOVOPROD-212174

PATIENT
  Age: 36 Year
  Sex: Male

DRUGS (5)
  1. NOVOSEVEN [Suspect]
     Indication: DRUG USE FOR UNKNOWN INDICATION
     Dosage: 90 UG/KG, SINGLE
     Route: 042
     Dates: start: 20010915, end: 20010915
  2. NOVOSEVEN [Suspect]
     Dosage: 90 UG/KG, SINGLE
     Route: 042
     Dates: start: 20010901
  3. RED BLOOD CELLS [Concomitant]
     Dosage: 39 U, SINGLE
     Route: 042
     Dates: start: 20010915, end: 20010915
  4. FRESH FROZEN PLASMA [Concomitant]
     Dosage: 24 U, SINGLE
     Route: 042
     Dates: start: 20010915, end: 20010915
  5. PLATELETS [Concomitant]
     Dosage: 18 U, SINGLE
     Route: 042
     Dates: start: 20010915, end: 20010915

REACTIONS (9)
  - BLOOD PH DECREASED [None]
  - CARDIAC ARREST [None]
  - DEATH [None]
  - HAEMOGLOBIN DECREASED [None]
  - HYPOTENSION [None]
  - PARAPLEGIA [None]
  - PROTHROMBIN TIME PROLONGED [None]
  - PULMONARY EMBOLISM [None]
  - THROMBOSIS [None]
